FAERS Safety Report 18660436 (Version 1)
Quarter: 2020Q4

REPORT INFORMATION
  Report Type: Spontaneous
  Country: TR (occurrence: TR)
  Receive Date: 20201223
  Receipt Date: 20201223
  Transmission Date: 20210114
  Serious: Yes (Hospitalization)
  Sender: FDA-Public Use
  Company Number: TR-LUPIN PHARMACEUTICALS INC.-2020-10544

PATIENT
  Age: 6 Year
  Sex: Male

DRUGS (1)
  1. METHYLPHENIDATE. [Suspect]
     Active Substance: METHYLPHENIDATE
     Indication: ATTENTION DEFICIT HYPERACTIVITY DISORDER
     Dosage: 20 MILLIGRAM, QD (MODIFIED-RELEASE)
     Route: 065

REACTIONS (1)
  - Dyskinesia [Recovering/Resolving]
